FAERS Safety Report 25182872 (Version 1)
Quarter: 2025Q2

REPORT INFORMATION
  Report Type: Spontaneous
  Country: IT (occurrence: IT)
  Receive Date: 20250410
  Receipt Date: 20250410
  Transmission Date: 20250717
  Serious: Yes (Hospitalization, Other)
  Sender: CHEPLAPHARM
  Company Number: None

PATIENT
  Age: 35 Year
  Sex: Male

DRUGS (53)
  1. CLONAZEPAM [Suspect]
     Active Substance: CLONAZEPAM
     Indication: Schizophrenia
     Dosage: 3 MILLIGRAM, ONCE A DAY?DAILY DOSE: 3 MILLIGRAM
  2. QUETIAPINE [Suspect]
     Active Substance: QUETIAPINE
     Indication: Bipolar disorder
  3. OLANZAPINE [Suspect]
     Active Substance: OLANZAPINE
     Indication: Bipolar disorder
  4. RISPERIDONE [Suspect]
     Active Substance: RISPERIDONE
     Indication: Bipolar disorder
  5. PIMOZIDE [Suspect]
     Active Substance: PIMOZIDE
     Indication: Akathisia
  6. PIMOZIDE [Suspect]
     Active Substance: PIMOZIDE
     Indication: Bipolar disorder
  7. CHLORPROMAZINE [Suspect]
     Active Substance: CHLORPROMAZINE
     Indication: Bipolar disorder
  8. CHLORPROMAZINE [Suspect]
     Active Substance: CHLORPROMAZINE
     Indication: Akathisia
  9. CLOMIPRAMINE [Concomitant]
     Active Substance: CLOMIPRAMINE
     Indication: Obsessive-compulsive disorder
     Dosage: 100 MILLIGRAM, ONCE A DAY?DAILY DOSE: 100 MILLIGRAM
  10. CLOMIPRAMINE [Concomitant]
     Active Substance: CLOMIPRAMINE
     Indication: Gambling disorder
     Dosage: 100 MILLIGRAM, ONCE A DAY?DAILY DOSE: 100 MILLIGRAM
  11. CLOMIPRAMINE [Concomitant]
     Active Substance: CLOMIPRAMINE
     Indication: Antidepressant therapy
     Dosage: 100 MILLIGRAM, ONCE A DAY?DAILY DOSE: 100 MILLIGRAM
  12. CLOMIPRAMINE [Concomitant]
     Active Substance: CLOMIPRAMINE
     Indication: Schizophrenia
     Dosage: 100 MILLIGRAM, ONCE A DAY?DAILY DOSE: 100 MILLIGRAM
  13. CLOZAPINE [Concomitant]
     Active Substance: CLOZAPINE
     Indication: Obsessive-compulsive disorder
  14. CLOZAPINE [Concomitant]
     Active Substance: CLOZAPINE
     Indication: Antipsychotic therapy
  15. CLOZAPINE [Concomitant]
     Active Substance: CLOZAPINE
     Indication: Gambling disorder
  16. CLOZAPINE [Concomitant]
     Active Substance: CLOZAPINE
     Indication: Schizophrenia
  17. CLOZAPINE [Concomitant]
     Active Substance: CLOZAPINE
     Indication: Obsessive-compulsive disorder
  18. CLOZAPINE [Concomitant]
     Active Substance: CLOZAPINE
     Indication: Antipsychotic therapy
  19. CLOZAPINE [Concomitant]
     Active Substance: CLOZAPINE
     Indication: Gambling disorder
  20. CLOZAPINE [Concomitant]
     Active Substance: CLOZAPINE
     Indication: Schizophrenia
  21. GABAPENTIN [Concomitant]
     Active Substance: GABAPENTIN
     Indication: Gambling disorder
  22. GABAPENTIN [Concomitant]
     Active Substance: GABAPENTIN
     Indication: Schizophrenia
  23. GABAPENTIN [Concomitant]
     Active Substance: GABAPENTIN
     Indication: Mood altered
  24. GABAPENTIN [Concomitant]
     Active Substance: GABAPENTIN
     Indication: Obsessive-compulsive disorder
  25. GABAPENTIN [Concomitant]
     Active Substance: GABAPENTIN
     Indication: Gambling disorder
  26. GABAPENTIN [Concomitant]
     Active Substance: GABAPENTIN
     Indication: Schizophrenia
  27. GABAPENTIN [Concomitant]
     Active Substance: GABAPENTIN
     Indication: Mood altered
  28. GABAPENTIN [Concomitant]
     Active Substance: GABAPENTIN
     Indication: Obsessive-compulsive disorder
  29. MIRTAZAPINE [Concomitant]
     Active Substance: MIRTAZAPINE
     Indication: Schizophrenia
     Dosage: 30 MILLIGRAM, ONCE A DAY?DAILY DOSE: 30 MILLIGRAM
  30. MIRTAZAPINE [Concomitant]
     Active Substance: MIRTAZAPINE
     Indication: Obsessive-compulsive disorder
     Dosage: 30 MILLIGRAM, ONCE A DAY?DAILY DOSE: 30 MILLIGRAM
  31. MIRTAZAPINE [Concomitant]
     Active Substance: MIRTAZAPINE
     Indication: Antidepressant therapy
     Dosage: 30 MILLIGRAM, ONCE A DAY?DAILY DOSE: 30 MILLIGRAM
  32. MIRTAZAPINE [Concomitant]
     Active Substance: MIRTAZAPINE
     Indication: Gambling disorder
     Dosage: 30 MILLIGRAM, ONCE A DAY?DAILY DOSE: 30 MILLIGRAM
  33. MIRTAZAPINE [Concomitant]
     Active Substance: MIRTAZAPINE
     Indication: Schizophrenia
     Dosage: DAILY DOSE: 15 MILLIGRAM
  34. MIRTAZAPINE [Concomitant]
     Active Substance: MIRTAZAPINE
     Indication: Obsessive-compulsive disorder
     Dosage: DAILY DOSE: 15 MILLIGRAM
  35. MIRTAZAPINE [Concomitant]
     Active Substance: MIRTAZAPINE
     Indication: Antidepressant therapy
     Dosage: DAILY DOSE: 15 MILLIGRAM
  36. MIRTAZAPINE [Concomitant]
     Active Substance: MIRTAZAPINE
     Indication: Gambling disorder
     Dosage: DAILY DOSE: 15 MILLIGRAM
  37. PERPHENAZINE [Concomitant]
     Active Substance: PERPHENAZINE
     Indication: Schizophrenia
     Dosage: 8 MILLIGRAM, ONCE A DAY?DAILY DOSE: 8 MILLIGRAM
  38. PERPHENAZINE [Concomitant]
     Active Substance: PERPHENAZINE
     Indication: Gambling disorder
     Dosage: 8 MILLIGRAM, ONCE A DAY?DAILY DOSE: 8 MILLIGRAM
  39. PERPHENAZINE [Concomitant]
     Active Substance: PERPHENAZINE
     Indication: Antipsychotic therapy
     Dosage: 8 MILLIGRAM, ONCE A DAY?DAILY DOSE: 8 MILLIGRAM
  40. PERPHENAZINE [Concomitant]
     Active Substance: PERPHENAZINE
     Indication: Obsessive-compulsive disorder
     Dosage: 8 MILLIGRAM, ONCE A DAY?DAILY DOSE: 8 MILLIGRAM
  41. TRAZODONE [Concomitant]
     Active Substance: TRAZODONE HYDROCHLORIDE
     Indication: Gambling disorder
     Dosage: 75 MILLIGRAM, ONCE A DAY?DAILY DOSE: 75 MILLIGRAM
  42. TRAZODONE [Concomitant]
     Active Substance: TRAZODONE HYDROCHLORIDE
     Indication: Antidepressant therapy
     Dosage: 75 MILLIGRAM, ONCE A DAY?DAILY DOSE: 75 MILLIGRAM
  43. TRAZODONE [Concomitant]
     Active Substance: TRAZODONE HYDROCHLORIDE
     Indication: Schizophrenia
     Dosage: 75 MILLIGRAM, ONCE A DAY?DAILY DOSE: 75 MILLIGRAM
  44. TRAZODONE [Concomitant]
     Active Substance: TRAZODONE HYDROCHLORIDE
     Indication: Obsessive-compulsive disorder
     Dosage: 75 MILLIGRAM, ONCE A DAY?DAILY DOSE: 75 MILLIGRAM
  45. VALPROIC ACID [Concomitant]
     Active Substance: VALPROIC ACID
     Indication: Schizophrenia
  46. VALPROIC ACID [Concomitant]
     Active Substance: VALPROIC ACID
     Indication: Mood altered
  47. VALPROIC ACID [Concomitant]
     Active Substance: VALPROIC ACID
     Indication: Gambling disorder
  48. VALPROIC ACID [Concomitant]
     Active Substance: VALPROIC ACID
     Indication: Obsessive-compulsive disorder
  49. VALPROIC ACID [Concomitant]
     Active Substance: VALPROIC ACID
     Indication: Schizophrenia
  50. VALPROIC ACID [Concomitant]
     Active Substance: VALPROIC ACID
     Indication: Mood altered
  51. VALPROIC ACID [Concomitant]
     Active Substance: VALPROIC ACID
     Indication: Gambling disorder
  52. VALPROIC ACID [Concomitant]
     Active Substance: VALPROIC ACID
     Indication: Obsessive-compulsive disorder
  53. LURASIDONE [Concomitant]
     Active Substance: LURASIDONE
     Dosage: AFTER ABOUT 3 WEEKS, LURASIDONE AT 148 MG/DAY WAS INTRODUCED?DAILY DOSE: 148 MILLIGRAM

REACTIONS (3)
  - Suicide attempt [Unknown]
  - Therapy partial responder [Unknown]
  - Off label use [Not Recovered/Not Resolved]
